FAERS Safety Report 4299197-6 (Version None)
Quarter: 2004Q1

REPORT INFORMATION
  Report Type: 
  Country: None (occurrence: None)
  Receive Date: 20040217
  Receipt Date: 20040217
  Transmission Date: 20041129
  Serious: Yes (Life-Threatening)
  Sender: FDA-Public Use
  Company Number: None

PATIENT
  Age: 75 Year
  Sex: Female
  Weight: 62.5964 kg

DRUGS (2)
  1. MOTRIN [Suspect]
     Indication: ENDODONTIC PROCEDURE
     Dates: start: 20031112, end: 20031116
  2. MOTRIN [Suspect]
     Indication: POST PROCEDURAL PAIN
     Dates: start: 20031112, end: 20031116

REACTIONS (3)
  - BLOOD PRESSURE DECREASED [None]
  - CARDIAC FAILURE [None]
  - GASTROINTESTINAL HAEMORRHAGE [None]
